FAERS Safety Report 8808357 (Version 1)
Quarter: 2012Q4

REPORT INFORMATION
  Report Type: Spontaneous
  Country: US (occurrence: None)
  Receive Date: 20120920
  Receipt Date: 20120920
  Transmission Date: 20130627
  Serious: No
  Sender: FDA-Public Use
  Company Number: None

PATIENT
  Age: 59 Year
  Sex: Female

DRUGS (1)
  1. HUMATROPE [Suspect]
     Indication: PITUITARY DWARFISM
     Route: 048
     Dates: start: 20120613, end: 20120914

REACTIONS (3)
  - Hypoaesthesia [None]
  - Paraesthesia [None]
  - Burning sensation [None]
